FAERS Safety Report 12168619 (Version 2)
Quarter: 2016Q1

REPORT INFORMATION
  Report Type: Report from Study
  Country: PL (occurrence: PL)
  Receive Date: 20160310
  Receipt Date: 20160322
  Transmission Date: 20160526
  Serious: Yes (Other)
  Sender: FDA-Public Use
  Company Number: PL-BAYER-2016-044607

PATIENT
  Age: 41 Year
  Sex: Female

DRUGS (1)
  1. BETAFERON [Suspect]
     Active Substance: INTERFERON BETA-1B
     Indication: MULTIPLE SCLEROSIS
     Dosage: UNK UNK, QOD
     Route: 058
     Dates: start: 20151228, end: 20160311

REACTIONS (4)
  - Hypothyroidism [Recovering/Resolving]
  - Metrorrhagia [Recovered/Resolved]
  - Haemorrhagic ovarian cyst [Recovering/Resolving]
  - Menorrhagia [Recovered/Resolved]

NARRATIVE: CASE EVENT DATE: 201601
